FAERS Safety Report 5582994-4 (Version None)
Quarter: 2008Q1

REPORT INFORMATION
  Report Type: 
  Country: None (occurrence: None)
  Receive Date: 20080107
  Receipt Date: 20080104
  Transmission Date: 20080703
  Serious: Yes (Other)
  Sender: FDA-Public Use
  Company Number: GB-BAYER-200711410BNE

PATIENT
  Age: 62 Year
  Sex: Male

DRUGS (5)
  1. BETASERON [Suspect]
     Indication: DRUG USE FOR UNKNOWN INDICATION
     Dates: start: 20051001
  2. CO-DYDRAMOL [Concomitant]
     Indication: PAIN
     Route: 048
  3. SIMVASTATIN [Concomitant]
     Indication: HYPERCHOLESTEROLAEMIA
     Route: 048
  4. GABAPENTIN [Concomitant]
     Indication: PARAESTHESIA
     Route: 048
  5. CITALOPRAM HYDROBROMIDE [Concomitant]
     Indication: AFFECTIVE DISORDER
     Route: 048

REACTIONS (4)
  - COLORECTAL CANCER [None]
  - LIVER FUNCTION TEST ABNORMAL [None]
  - METASTASES TO LIVER [None]
  - METASTASES TO LUNG [None]
